FAERS Safety Report 4493809-X (Version None)
Quarter: 2004Q4

REPORT INFORMATION
  Report Type: 
  Country: None (occurrence: None)
  Receive Date: 20041105
  Receipt Date: 20041101
  Transmission Date: 20050328
  Serious: Yes (Life-Threatening)
  Sender: FDA-Public Use
  Company Number: PHFR2004GB04015

PATIENT
  Age: 85 Year
  Sex: Female

DRUGS (7)
  1. RIVASTIGMINE [Suspect]
     Indication: DEMENTIA
     Dosage: 4.5 MG, BID
     Route: 048
     Dates: start: 20020807, end: 20041018
  2. RIVASTIGMINE [Suspect]
     Dosage: 3 MG, BID
     Route: 048
  3. OLANZAPINE [Concomitant]
     Indication: DEMENTIA
     Dosage: 5MG/DAY
     Route: 048
     Dates: start: 20021201
  4. THYROXINE [Concomitant]
     Indication: HYPOTHYROIDISM
     Dosage: 100UG/DAY
     Route: 048
     Dates: start: 19970101
  5. BUMETANIDE [Concomitant]
     Indication: CARDIAC FAILURE
     Dosage: 1MG/DAY
     Route: 065
     Dates: start: 20040701
  6. OMEPRAZOLE [Concomitant]
     Indication: OESOPHAGITIS
     Dosage: 20MG/DAY
     Route: 065
     Dates: start: 20040701
  7. DOCUSATE SODIUM [Concomitant]
     Indication: CONSTIPATION
     Dosage: 100MG/DAY
     Route: 065
     Dates: start: 20040701

REACTIONS (9)
  - ANAEMIA [None]
  - CARDIAC FAILURE [None]
  - GASTROINTESTINAL HAEMORRHAGE [None]
  - HAEMATEMESIS [None]
  - HAEMOGLOBIN DECREASED [None]
  - HIATUS HERNIA [None]
  - OESOPHAGITIS [None]
  - PNEUMONIA ASPIRATION [None]
  - ULCER [None]
